FAERS Safety Report 5869481-0 (Version None)
Quarter: 2008Q3

REPORT INFORMATION
  Report Type: 
  Country: None (occurrence: None)
  Receive Date: 20080829
  Receipt Date: 20080814
  Transmission Date: 20090109
  Serious: Yes (Hospitalization)
  Sender: FDA-Public Use
  Company Number: 2008S1014067

PATIENT
  Age: 52 Year
  Sex: Female

DRUGS (7)
  1. BYSTOLIC [Suspect]
     Indication: BLOOD PRESSURE FLUCTUATION
     Dosage: 5 MG;X1;ORAL, 5 MG;X1;ORAL, 2.5 MG;X1;ORAL
     Route: 048
     Dates: start: 20080715, end: 20080715
  2. BYSTOLIC [Suspect]
     Indication: BLOOD PRESSURE FLUCTUATION
     Dosage: 5 MG;X1;ORAL, 5 MG;X1;ORAL, 2.5 MG;X1;ORAL
     Route: 048
     Dates: start: 20080720, end: 20080720
  3. BYSTOLIC [Suspect]
     Indication: BLOOD PRESSURE FLUCTUATION
     Dosage: 5 MG;X1;ORAL, 5 MG;X1;ORAL, 2.5 MG;X1;ORAL
     Route: 048
     Dates: start: 20080724, end: 20080724
  4. LEVOXYL [Concomitant]
  5. METOPROLOL SUCCINATE [Concomitant]
  6. ASPIRIN [Concomitant]
  7. OXYGEN [Concomitant]

REACTIONS (3)
  - CEREBROVASCULAR ACCIDENT [None]
  - CONDITION AGGRAVATED [None]
  - TRANSIENT ISCHAEMIC ATTACK [None]
